FAERS Safety Report 24766402 (Version 1)
Quarter: 2024Q4

REPORT INFORMATION
  Report Type: Spontaneous
  Country: US (occurrence: None)
  Receive Date: 20241223
  Receipt Date: 20241223
  Transmission Date: 20250115
  Serious: Yes (Life-Threatening)
  Sender: Public
  Company Number: None

PATIENT
  Age: 8 Year
  Sex: Male
  Weight: 34.2 kg

DRUGS (11)
  1. CLONIDINE [Suspect]
     Active Substance: CLONIDINE
     Indication: Attention deficit hyperactivity disorder
     Dosage: OTHER QUANTITY : 0.25 TABLET(S);?OTHER FREQUENCY : 4 TO 6 HOURS;?
     Route: 048
     Dates: start: 20220824, end: 20241222
  2. CLONIDINE [Suspect]
     Active Substance: CLONIDINE
     Indication: Sleep disorder
  3. TOPIRAMATE [Concomitant]
     Active Substance: TOPIRAMATE
  4. BRIVIACT [Concomitant]
     Active Substance: BRIVARACETAM
  5. VALPROIC ACID [Concomitant]
     Active Substance: VALPROIC ACID
  6. LEVOCARNITINE [Concomitant]
     Active Substance: LEVOCARNITINE
  7. RUFINAMIDE [Concomitant]
     Active Substance: RUFINAMIDE
  8. CHOLECALCIFEROL [Concomitant]
     Active Substance: CHOLECALCIFEROL
  9. Chlorpheniramine Mealate [Concomitant]
  10. MELATONIN [Concomitant]
     Active Substance: MELATONIN
  11. CLONIDINE TRANSDERMAL SYSTEM [Concomitant]
     Active Substance: CLONIDINE

REACTIONS (3)
  - Generalised tonic-clonic seizure [None]
  - Respiratory arrest [None]
  - Vomiting [None]

NARRATIVE: CASE EVENT DATE: 20241222
